FAERS Safety Report 19447160 (Version 1)
Quarter: 2021Q2

REPORT INFORMATION
  Report Type: Spontaneous
  Country: US (occurrence: US)
  Receive Date: 20210621
  Receipt Date: 20210621
  Transmission Date: 20210717
  Serious: Yes (Other)
  Sender: FDA-Public Use
  Company Number: None

PATIENT
  Age: 7 Year
  Sex: Male
  Weight: 27.2 kg

DRUGS (2)
  1. SAPROTERIN DIHY 500MG POWDER PACKET [Suspect]
     Active Substance: SAPROPTERIN DIHYDROCHLORIDE
     Indication: PHENYLKETONURIA
     Route: 048
     Dates: start: 20210304, end: 20210525
  2. KUVAN [Concomitant]
     Active Substance: SAPROPTERIN DIHYDROCHLORIDE

REACTIONS (3)
  - Nausea [None]
  - Abdominal pain upper [None]
  - Diarrhoea [None]

NARRATIVE: CASE EVENT DATE: 20210525
